FAERS Safety Report 4679738-7 (Version None)
Quarter: 2005Q2

REPORT INFORMATION
  Report Type: 
  Country: None (occurrence: None)
  Receive Date: 20050602
  Receipt Date: 20050525
  Transmission Date: 20051028
  Serious: Yes (Hospitalization)
  Sender: FDA-Public Use
  Company Number: CA-ROCHE-405781

PATIENT
  Age: 57 Year
  Sex: Male

DRUGS (2)
  1. VESANOID [Suspect]
     Route: 048
     Dates: start: 20050415, end: 20050515
  2. PREDNISONE TAB [Concomitant]

REACTIONS (2)
  - CONDITION AGGRAVATED [None]
  - GOUT [None]
